FAERS Safety Report 21886616 (Version 1)
Quarter: 2023Q1

REPORT INFORMATION
  Report Type: Spontaneous
  Country: FR (occurrence: FR)
  Receive Date: 20230119
  Receipt Date: 20230119
  Transmission Date: 20230417
  Serious: Yes (Hospitalization)
  Sender: FDA-Public Use
  Company Number: None

PATIENT
  Age: 72 Year
  Sex: Female
  Weight: 83 kg

DRUGS (4)
  1. AMLODIPINE [Suspect]
     Active Substance: AMLODIPINE BESYLATE
     Indication: Product used for unknown indication
     Dosage: NP
     Route: 048
     Dates: start: 20221016, end: 20221016
  2. ACETAMINOPHEN [Suspect]
     Active Substance: ACETAMINOPHEN
     Indication: Product used for unknown indication
     Dosage: 24 GRAM
     Route: 048
     Dates: start: 20221016, end: 20221016
  3. FUROSEMIDE [Suspect]
     Active Substance: FUROSEMIDE
     Indication: Product used for unknown indication
     Dosage: NP
     Route: 048
     Dates: start: 20221016, end: 20221016
  4. PROPRANOLOL [Suspect]
     Active Substance: PROPRANOLOL HYDROCHLORIDE
     Indication: Product used for unknown indication
     Dosage: 30 X 160 MG
     Route: 048
     Dates: start: 20221016, end: 20221016

REACTIONS (5)
  - Respiratory acidosis [Recovered/Resolved]
  - Poisoning deliberate [Recovered/Resolved]
  - Bradycardia [Recovered/Resolved]
  - Transaminases increased [Recovered/Resolved]
  - Hypotension [Recovered/Resolved]

NARRATIVE: CASE EVENT DATE: 20221016
